FAERS Safety Report 13035911 (Version 1)
Quarter: 2016Q4

REPORT INFORMATION
  Report Type: Report from Study
  Country: FR (occurrence: FR)
  Receive Date: 20161216
  Receipt Date: 20161216
  Transmission Date: 20170207
  Serious: Yes (Other)
  Sender: FDA-Public Use
  Company Number: FR-PFIZER INC-2016582157

PATIENT
  Age: 45 Year
  Sex: Female

DRUGS (2)
  1. IBUPROFEN. [Suspect]
     Active Substance: IBUPROFEN
     Dosage: UNK
  2. PRISTINAMYCIN [Suspect]
     Active Substance: PRISTINAMYCIN
     Dosage: UNK UNK, DAILY (2-3 G PER DAY DIVIDED INTO 2-3 DOSES)

REACTIONS (2)
  - Angioedema [Unknown]
  - Drug hypersensitivity [Unknown]
